FAERS Safety Report 13153000 (Version 3)
Quarter: 2017Q1

REPORT INFORMATION
  Report Type: Spontaneous
  Country: US (occurrence: US)
  Receive Date: 20170126
  Receipt Date: 20170217
  Transmission Date: 20170428
  Serious: Yes (Death, Hospitalization)
  Sender: FDA-Public Use
  Company Number: US-INCYTE CORPORATION-2017IN000405

PATIENT
  Age: 79 Year
  Sex: Male

DRUGS (2)
  1. JAKAFI [Suspect]
     Active Substance: RUXOLITINIB
     Indication: MYELOFIBROSIS
     Dosage: 10 MG, BID
     Route: 048
     Dates: end: 20161226
  2. JAKAFI [Suspect]
     Active Substance: RUXOLITINIB
     Dosage: 10MG TAB X 2, BID
     Route: 048
     Dates: start: 20160328, end: 20170208

REACTIONS (5)
  - Fungaemia [Unknown]
  - Death [Fatal]
  - Eating disorder [Unknown]
  - Fall [Unknown]
  - Meningitis [Unknown]

NARRATIVE: CASE EVENT DATE: 20161226
